FAERS Safety Report 8451067-5 (Version None)
Quarter: 2012Q2

REPORT INFORMATION
  Report Type: 
  Country: None (occurrence: None)
  Receive Date: 20120620
  Receipt Date: 20120608
  Transmission Date: 20120825
  Serious: Yes (Life-Threatening)
  Sender: FDA-Public Use
  Company Number: CA-FRI-1000027130

PATIENT
  Age: 36 Year
  Sex: Female
  Weight: 83 kg

DRUGS (2)
  1. ESCITALOPRAM [Suspect]
     Indication: DEPRESSION
  2. ESCITALOPRAM [Suspect]
     Indication: GENERALISED ANXIETY DISORDER
     Route: 048

REACTIONS (12)
  - AGGRESSION [None]
  - POLLAKIURIA [None]
  - CONFUSIONAL STATE [None]
  - DECREASED APPETITE [None]
  - ABNORMAL DREAMS [None]
  - NERVOUS SYSTEM DISORDER [None]
  - HYPERACUSIS [None]
  - SUICIDAL IDEATION [None]
  - TINNITUS [None]
  - FATIGUE [None]
  - DISTURBANCE IN ATTENTION [None]
  - SOMNOLENCE [None]
